FAERS Safety Report 4973753-1 (Version None)
Quarter: 2006Q2

REPORT INFORMATION
  Report Type: 
  Country: None (occurrence: None)
  Receive Date: 20060414
  Receipt Date: 20060104
  Transmission Date: 20061013
  Serious: Yes (Hospitalization)
  Sender: FDA-Public Use
  Company Number: US-MERCK-0601USA00573

PATIENT
  Age: 71 Year
  Sex: Female
  Weight: 73 kg

DRUGS (23)
  1. INDAPAMIDE [Concomitant]
     Indication: ASTHMA
     Route: 065
  2. NEXIUM [Concomitant]
     Indication: GASTROOESOPHAGEAL REFLUX DISEASE
     Route: 065
  3. SINGULAIR [Concomitant]
     Indication: SEASONAL ALLERGY
     Route: 065
  4. SINGULAIR [Concomitant]
     Indication: ASTHMA
     Route: 065
  5. KLOR-CON [Concomitant]
     Indication: HYPOKALAEMIA
     Route: 065
  6. MECLIZINE [Concomitant]
     Indication: NAUSEA
     Route: 065
  7. MAGNESIUM SULFATE [Concomitant]
     Indication: CHEST PAIN
     Route: 065
     Dates: start: 19820101
  8. TYLENOL (CAPLET) [Concomitant]
     Indication: PAIN
     Route: 065
     Dates: start: 20000101
  9. VIOXX [Suspect]
     Indication: MONARTHRITIS
     Route: 048
     Dates: start: 20030701, end: 20031218
  10. VIOXX [Suspect]
     Route: 048
     Dates: start: 20030701, end: 20031218
  11. COUMADIN [Concomitant]
     Indication: THROMBOSIS
     Route: 065
     Dates: start: 19800101
  12. VERAPAMIL MSD LP [Concomitant]
     Indication: CARDIAC DISORDER
     Route: 065
     Dates: start: 19860101, end: 20051001
  13. THYROLAR [Concomitant]
     Indication: THYROID DISORDER
     Route: 065
     Dates: start: 19900101
  14. ADVAIR DISKUS 100/50 [Concomitant]
     Indication: SEASONAL ALLERGY
     Route: 065
  15. ADVAIR DISKUS 100/50 [Concomitant]
     Indication: ASTHMA
     Route: 065
  16. MINITRAN [Concomitant]
     Indication: CHEST PAIN
     Route: 065
     Dates: start: 19820101
  17. RANITIDINE-BC [Concomitant]
     Indication: SEASONAL ALLERGY
     Route: 065
  18. RANITIDINE-BC [Concomitant]
     Indication: ASTHMA
     Route: 065
  19. SOTALOL HYDROCHLORIDE [Concomitant]
     Indication: CARDIAC DISORDER
     Route: 065
     Dates: start: 19860101
  20. ALLEGRA [Concomitant]
     Indication: SEASONAL ALLERGY
     Route: 065
  21. ALLEGRA [Concomitant]
     Indication: ASTHMA
     Route: 065
  22. LIPITOR [Concomitant]
     Indication: BLOOD CHOLESTEROL INCREASED
     Route: 065
     Dates: start: 20020101
  23. INDAPAMIDE [Concomitant]
     Indication: SEASONAL ALLERGY
     Route: 065

REACTIONS (8)
  - ARTHROPATHY [None]
  - BRONCHITIS [None]
  - CARDIAC DISORDER [None]
  - CEREBROVASCULAR ACCIDENT [None]
  - FLUID RETENTION [None]
  - LYMPHOEDEMA [None]
  - OBESITY [None]
  - SLEEP APNOEA SYNDROME [None]
